FAERS Safety Report 4615420-X (Version None)
Quarter: 2005Q2

REPORT INFORMATION
  Report Type: 
  Country: None (occurrence: None)
  Receive Date: 20050311
  Receipt Date: 20041130
  Transmission Date: 20051028
  Serious: No
  Sender: FDA-Public Use
  Company Number: 2004BP-08240BP

PATIENT
  Sex: Male

DRUGS (15)
  1. SPIRIVA [Suspect]
     Indication: CHRONIC OBSTRUCTIVE PULMONARY DISEASE
     Dosage: 18 MCG (18 MCG), IH
     Route: 055
     Dates: start: 20040701
  2. SPIRIVA [Suspect]
     Indication: DYSPNOEA
     Dosage: 18 MCG (18 MCG), IH
     Route: 055
     Dates: start: 20040701
  3. SPIRIVA [Suspect]
     Indication: CHRONIC OBSTRUCTIVE PULMONARY DISEASE
     Dosage: 18 MCG (18 MCG), IH
     Route: 055
     Dates: start: 20040701
  4. SPIRIVA [Suspect]
     Indication: DYSPNOEA
     Dosage: 18 MCG (18 MCG), IH
     Route: 055
     Dates: start: 20040701
  5. ALTACE [Concomitant]
  6. COREG [Concomitant]
  7. HYDROCHLOROTHIAZIDE [Concomitant]
  8. DITROPAN [Concomitant]
  9. DIGOXIN [Concomitant]
  10. PLAVIX [Concomitant]
  11. ASPIRIN [Concomitant]
  12. BEANO (ALPHA-D-GALACTOSIDASE) [Concomitant]
  13. ROGAINE [Concomitant]
  14. VITAMINS (VITAMINS) [Concomitant]
  15. MUCINEX (GUAIFENESIN) [Concomitant]

REACTIONS (1)
  - DYSPNOEA EXACERBATED [None]
